FAERS Safety Report 14233649 (Version 1)
Quarter: 2017Q4

REPORT INFORMATION
  Report Type: Spontaneous
  Country: ES (occurrence: ES)
  Receive Date: 20171129
  Receipt Date: 20171129
  Transmission Date: 20180321
  Serious: Yes (Other)
  Sender: FDA-Public Use
  Company Number: ES-BAYER-2017-222944

PATIENT
  Sex: Male

DRUGS (1)
  1. XOFIGO [Suspect]
     Active Substance: RADIUM RA-223 DICHLORIDE

REACTIONS (7)
  - Exposed bone in jaw [Recovering/Resolving]
  - Oral cavity fistula [None]
  - Pain in jaw [Recovering/Resolving]
  - Toothache [Recovering/Resolving]
  - Tooth fracture [None]
  - Impaired healing [None]
  - Osteonecrosis of jaw [None]
